FAERS Safety Report 11431598 (Version 1)
Quarter: 2015Q3

REPORT INFORMATION
  Report Type: Report from Study
  Country: US (occurrence: US)
  Receive Date: 20150828
  Receipt Date: 20150828
  Transmission Date: 20151125
  Serious: Yes (Other)
  Sender: FDA-Public Use
  Company Number: PHEH2015US008921

PATIENT
  Sex: Female
  Weight: 106.58 kg

DRUGS (3)
  1. VIIBRYD [Suspect]
     Active Substance: VILAZODONE HYDROCHLORIDE
     Indication: DIZZINESS
     Route: 065
  2. VIIBRYD [Suspect]
     Active Substance: VILAZODONE HYDROCHLORIDE
     Indication: EMOTIONAL DISORDER
  3. GILENYA [Suspect]
     Active Substance: FINGOLIMOD HYDROCHLORIDE
     Indication: MULTIPLE SCLEROSIS
     Dosage: 0.5 MG, QD
     Route: 048
     Dates: start: 20150107, end: 20150809

REACTIONS (15)
  - White blood cell count decreased [Unknown]
  - JC virus test positive [Unknown]
  - Hypersensitivity [Unknown]
  - Depression [Unknown]
  - Fatigue [Unknown]
  - Balance disorder [Unknown]
  - Sinusitis [Unknown]
  - Cough [Not Recovered/Not Resolved]
  - Emotional disorder [Unknown]
  - Gastrointestinal disorder [Unknown]
  - Depressed mood [Unknown]
  - Weight increased [Recovering/Resolving]
  - Decreased appetite [Unknown]
  - Dizziness [Unknown]
  - Feeling abnormal [Unknown]
